FAERS Safety Report 8973652 (Version 1)
Quarter: 2012Q4

REPORT INFORMATION
  Report Type: 
  Country: CA (occurrence: CA)
  Receive Date: 20121218
  Receipt Date: 20121218
  Transmission Date: 20130627
  Serious: Yes (Other)
  Sender: FDA-Public Use
  Company Number: CA-TEVA-376585USA

PATIENT
  Age: 83 Year
  Sex: Male

DRUGS (23)
  1. CLINDAMYCIN [Suspect]
     Dosage: 450 Milligram Daily;
  2. ACETAMINOPHEN [Concomitant]
     Route: 048
  3. ACTONEL [Concomitant]
     Route: 048
  4. ALDACTONE [Concomitant]
     Route: 065
  5. ALTACE [Concomitant]
     Route: 048
  6. ARAVA [Concomitant]
     Route: 065
  7. ASPIRIN [Concomitant]
     Route: 048
  8. BACTIGRAS [Concomitant]
     Dosage: dresing
     Route: 065
  9. CERUMOL [Concomitant]
     Route: 001
  10. CLINDAMYCIN [Concomitant]
     Route: 065
  11. COLACE [Concomitant]
     Route: 065
  12. DIGOXIN [Concomitant]
     Route: 065
  13. FAMVIR [Concomitant]
     Route: 048
  14. FUROSEMIDE [Concomitant]
     Route: 065
  15. M-ESLON [Concomitant]
     Route: 048
  16. M-ESLON [Concomitant]
     Route: 065
  17. METOCLOPRAMIDE HYDROCHLORIDE [Concomitant]
     Route: 065
  18. MIRTAZAPINE [Concomitant]
     Route: 048
  19. NEXIUM [Concomitant]
     Route: 065
  20. OXAZEPAM [Concomitant]
     Route: 048
  21. PLAQUENIL [Concomitant]
     Route: 048
  22. PREDNISONE [Concomitant]
     Route: 065
  23. VITAMIN D [Concomitant]
     Route: 048

REACTIONS (4)
  - Muscle disorder [Recovered/Resolved]
  - Muscular weakness [Recovered/Resolved]
  - Oedema peripheral [Recovered/Resolved]
  - Swelling face [Recovered/Resolved]
